FAERS Safety Report 6346904-4 (Version None)
Quarter: 2009Q3

REPORT INFORMATION
  Report Type: 
  Country: None (occurrence: None)
  Receive Date: 20090909
  Receipt Date: 20090909
  Transmission Date: 20100115
  Serious: No
  Sender: FDA-Public Use
  Company Number: None

PATIENT
  Age: 4 Month
  Sex: Female
  Weight: 90.7194 kg

DRUGS (1)
  1. CARDURA [Suspect]
     Indication: HYPERTENSION
     Dosage: 2 MG ONCE DAILY PO
     Route: 048
     Dates: start: 20090501, end: 20090901

REACTIONS (2)
  - STRESS URINARY INCONTINENCE [None]
  - URINARY INCONTINENCE [None]
